FAERS Safety Report 8836666 (Version 1)
Quarter: 2012Q4

REPORT INFORMATION
  Report Type: Spontaneous
  Country: GB (occurrence: None)
  Receive Date: 20121010
  Receipt Date: 20121010
  Transmission Date: 20130627
  Serious: Yes (Other)
  Sender: FDA-Public Use
  Company Number: AUR-APL-2012-04271

PATIENT
  Age: 50 Year

DRUGS (1)
  1. SIMVASTATIN [Suspect]
     Indication: PROPHYLAXIS

REACTIONS (1)
  - Nightmare [None]
